FAERS Safety Report 8511995-9 (Version None)
Quarter: 2012Q3

REPORT INFORMATION
  Report Type: 
  Country: None (occurrence: None)
  Receive Date: 20120716
  Receipt Date: 20120711
  Transmission Date: 20120928
  Serious: Yes (Death)
  Sender: FDA-Public Use
  Company Number: PHEH2012US013758

PATIENT
  Sex: Male

DRUGS (12)
  1. TEMAZEPAM [Concomitant]
     Dosage: 7.5 MG, UNK
  2. MAGNESIUM SULFATE [Concomitant]
     Dosage: 300 MG, UNK
  3. PLAVIX [Concomitant]
     Dosage: 75 MG, UNK
  4. LOVAZA [Concomitant]
     Dosage: 1 G, UNK
  5. KLOR-CON [Concomitant]
     Dosage: 8 MEQ, UNK
  6. PRESERVISION LUTEIN EYE VITA.+MIN.SUP.SOFTG. [Concomitant]
  7. BENICAR HCT [Concomitant]
  8. GLEEVEC [Suspect]
     Dosage: 100 MG ONCE DAILY
     Route: 048
  9. PRAVASTATIN [Concomitant]
     Dosage: 10 MG, UNK
  10. LEXAPRO [Concomitant]
     Dosage: 5 MG, UNK
  11. SOTALOL HCL [Concomitant]
     Dosage: 80 MG, UNK
  12. ESTER-C [Concomitant]

REACTIONS (1)
  - DEATH [None]
